FAERS Safety Report 4445836-6 (Version None)
Quarter: 2004Q3

REPORT INFORMATION
  Report Type: 
  Country: None (occurrence: None)
  Receive Date: 20040903
  Receipt Date: 20040823
  Transmission Date: 20050211
  Serious: Yes (Death)
  Sender: FDA-Public Use
  Company Number: USA-2004-0016508

PATIENT
  Age: 53 Year
  Sex: Male

DRUGS (8)
  1. OXYCODONE HCL [Suspect]
  2. CODEINE (CODEINE) [Suspect]
  3. DIAZEPAM [Suspect]
  4. VIOXX [Concomitant]
  5. ALBUTEROL [Concomitant]
  6. PAXIL [Concomitant]
  7. COMBIVENT (SALBUTAMOL SULFATE, IPRATROPIUM BROMIDE) [Concomitant]
  8. NEURONTIN [Concomitant]

REACTIONS (4)
  - ACCIDENT [None]
  - DRUG TOXICITY [None]
  - LUNG DISORDER [None]
  - MUSCULOSKELETAL PAIN [None]
